FAERS Safety Report 9855668 (Version 1)
Quarter: 2013Q4

REPORT INFORMATION
  Report Type: Spontaneous
  Country: US (occurrence: None)
  Receive Date: 20131226
  Receipt Date: 20131226
  Transmission Date: 20140711
  Serious: Yes (Other)
  Sender: FDA-Public Use
  Company Number: PHEH2013US004154

PATIENT
  Age: 39 Year
  Sex: Female

DRUGS (1)
  1. VIVELLE DOT (ESTRADIOL) TRANS-THERAPEUTIC-SYSTEM [Suspect]
     Dosage: Q72H
     Route: 062

REACTIONS (5)
  - Ovarian cancer [None]
  - Application site irritation [None]
  - Application site pruritus [None]
  - Application site pain [None]
  - Application site erythema [None]
